FAERS Safety Report 14938914 (Version 3)
Quarter: 2018Q4

REPORT INFORMATION
  Report Type: Other
  Country: JP (occurrence: JP)
  Receive Date: 20180525
  Receipt Date: 20181012
  Transmission Date: 20190204
  Serious: Yes (Hospitalization, Other)
  Sender: FDA-Public Use
  Company Number: JP-ACTELION-A-CH2018-172654

PATIENT
  Age: 36 Year
  Sex: Female

DRUGS (12)
  1. FLOLAN [Suspect]
     Active Substance: EPOPROSTENOL SODIUM
     Indication: PULMONARY ARTERIAL HYPERTENSION
     Dosage: UNK
     Route: 042
     Dates: start: 201609, end: 20170218
  2. RAMOSETRON [Concomitant]
     Active Substance: RAMOSETRON HYDROCHLORIDE
  3. BOSENTAN. [Suspect]
     Active Substance: BOSENTAN
     Indication: PULMONARY ARTERIAL HYPERTENSION
     Route: 048
  4. FLOLAN [Suspect]
     Active Substance: EPOPROSTENOL SODIUM
     Dosage: UNK
     Route: 042
     Dates: end: 201702
  5. OPSUMIT [Suspect]
     Active Substance: MACITENTAN
     Indication: PULMONARY ARTERIAL HYPERTENSION
     Dosage: 10 MG, QAM
     Route: 048
  6. TADALAFIL. [Concomitant]
     Active Substance: TADALAFIL
     Dosage: 20 MG, BID
  7. VONOPRAZAN [Concomitant]
     Active Substance: VONOPRAZAN
  8. REBAMIPIDE [Concomitant]
     Active Substance: REBAMIPIDE
  9. SILDENAFIL. [Concomitant]
     Active Substance: SILDENAFIL
     Dosage: 20 MG, UNK
  10. FERROUS CITRATE [Concomitant]
     Active Substance: FERROUS CITRATE
  11. OLOPATADINE. [Concomitant]
     Active Substance: OLOPATADINE
  12. FUROSEMIDE. [Concomitant]
     Active Substance: FUROSEMIDE

REACTIONS (18)
  - Decreased appetite [Unknown]
  - Hyponatraemia [Unknown]
  - Rathke^s cleft cyst [Unknown]
  - Device related infection [Unknown]
  - Silent thyroiditis [Unknown]
  - Pyrexia [Unknown]
  - Hypopituitarism [Unknown]
  - Hypothyroidism [Unknown]
  - Eosinophilia [Unknown]
  - Lymphadenopathy [Unknown]
  - Hyperthermia [Unknown]
  - Thyroiditis [Unknown]
  - Thyroid adenoma [Unknown]
  - Adrenocorticotropic hormone deficiency [Unknown]
  - Arthralgia [Unknown]
  - Hyperthyroidism [Unknown]
  - Goitre [Unknown]
  - Adrenal insufficiency [Unknown]

NARRATIVE: CASE EVENT DATE: 201612
